FAERS Safety Report 8052722-1 (Version None)
Quarter: 2012Q1

REPORT INFORMATION
  Report Type: 
  Country: None (occurrence: None)
  Receive Date: 20120117
  Receipt Date: 20120117
  Transmission Date: 20120608
  Serious: Yes (Hospitalization)
  Sender: FDA-Public Use
  Company Number: None

PATIENT
  Sex: Male
  Weight: 53 kg

DRUGS (17)
  1. MARINOL [Concomitant]
  2. TAXOL [Suspect]
     Dosage: 480 MG
     Dates: end: 20120105
  3. COLACE [Concomitant]
  4. COMBIVENT [Concomitant]
  5. DECADRON [Concomitant]
  6. OXYGEN [Concomitant]
  7. CARBOPLATIN [Suspect]
     Dosage: 285 MG
     Dates: end: 20120105
  8. ATRIPLA [Concomitant]
  9. MULTI-VITAMIN [Concomitant]
  10. SINGULAIR [Concomitant]
  11. FOLIC ACID [Concomitant]
  12. METHADONE HCL [Concomitant]
  13. ASPIRIN [Concomitant]
  14. COMPAZINE [Concomitant]
  15. BACTRIM DS [Concomitant]
  16. PREDNISONE [Concomitant]
  17. VITAMIN B1 TAB [Concomitant]

REACTIONS (7)
  - NEUTROPENIA [None]
  - PYREXIA [None]
  - CULTURE URINE POSITIVE [None]
  - CHRONIC OBSTRUCTIVE PULMONARY DISEASE [None]
  - CHILLS [None]
  - CONDITION AGGRAVATED [None]
  - WHITE BLOOD CELLS URINE POSITIVE [None]
